FAERS Safety Report 5681853-6 (Version None)
Quarter: 2008Q1

REPORT INFORMATION
  Report Type: 
  Country: None (occurrence: None)
  Receive Date: 20080327
  Receipt Date: 20070320
  Transmission Date: 20080703
  Serious: No
  Sender: FDA-Public Use
  Company Number: US-BAYER-US-2007-009975

PATIENT
  Age: 34 Year
  Sex: Female
  Weight: 125 kg

DRUGS (3)
  1. MIRENA [Suspect]
     Indication: CONTRACEPTION
     Route: 015
     Dates: start: 20060101
  2. LABETALOL HCL [Concomitant]
     Indication: HYPERTENSION
     Route: 048
  3. HYDROCHLOROTHIAZIDE [Concomitant]
     Indication: HYPERTENSION

REACTIONS (3)
  - ABDOMINAL PAIN [None]
  - MENORRHAGIA [None]
  - MENSTRUATION IRREGULAR [None]
